FAERS Safety Report 15453302 (Version 1)
Quarter: 2018Q4

REPORT INFORMATION
  Report Type: Spontaneous
  Country: SE (occurrence: SE)
  Receive Date: 20181001
  Receipt Date: 20181001
  Transmission Date: 20190204
  Serious: Yes (Hospitalization)
  Sender: FDA-Public Use
  Company Number: SE-BAYER-200510112BSV

PATIENT
  Age: 23 Year
  Sex: Male

DRUGS (12)
  1. ZINACEF [Suspect]
     Active Substance: CEFUROXIME SODIUM
     Indication: UNEVALUABLE EVENT
     Dosage: DAILY DOSE 1.5 MG
     Route: 042
     Dates: start: 20050224, end: 20050303
  2. ALVEDON [Concomitant]
     Active Substance: ACETAMINOPHEN
     Indication: UNEVALUABLE EVENT
     Dosage: UNK UNK, UNK
     Route: 065
  3. CIPRAMIL [Concomitant]
     Active Substance: CITALOPRAM HYDROBROMIDE
     Indication: UNEVALUABLE EVENT
     Dosage: UNK UNK, UNK
     Route: 065
  4. CIPRAMIL [Concomitant]
     Active Substance: CITALOPRAM HYDROBROMIDE
     Indication: UNEVALUABLE EVENT
     Route: 065
  5. PREDNISOLON [Concomitant]
     Active Substance: PREDNISOLONE
     Indication: UNEVALUABLE EVENT
     Dosage: UNK
     Route: 065
  6. DOXYFERM [Concomitant]
     Active Substance: DOXYCYCLINE
     Indication: INFECTION
     Dosage: UNK UNK, UNK
     Route: 065
     Dates: start: 20050222, end: 20050223
  7. ALVEDON [Concomitant]
     Active Substance: ACETAMINOPHEN
     Indication: UNEVALUABLE EVENT
     Dosage: 3.2 G, UNK
     Route: 048
     Dates: start: 20050226, end: 20050301
  8. PREDNISOLON [Concomitant]
     Active Substance: PREDNISOLONE
     Indication: UNEVALUABLE EVENT
     Route: 065
  9. AVELOX [Suspect]
     Active Substance: MOXIFLOXACIN HYDROCHLORIDE
     Indication: PNEUMONIA
     Dosage: 400 MG, UNK
     Route: 048
     Dates: start: 20050226, end: 20050301
  10. AVELOX [Suspect]
     Active Substance: MOXIFLOXACIN HYDROCHLORIDE
     Indication: PNEUMONIA
     Dosage: 3.2 G, UNK
     Route: 048
     Dates: start: 20050226, end: 20050301
  11. ZINACEF [Suspect]
     Active Substance: CEFUROXIME SODIUM
     Indication: UNEVALUABLE EVENT
     Dosage: 1.5 MG, QD
     Route: 042
     Dates: start: 20050224, end: 20050303
  12. CIPRAMIL [Concomitant]
     Active Substance: CITALOPRAM HYDROBROMIDE
     Indication: UNEVALUABLE EVENT
     Dosage: UNK
     Route: 065

REACTIONS (6)
  - Hepatic enzyme increased [Not Recovered/Not Resolved]
  - Gamma-glutamyltransferase abnormal [Unknown]
  - Blood bilirubin increased [Not Recovered/Not Resolved]
  - Transaminases increased [Not Recovered/Not Resolved]
  - Blood lactate dehydrogenase abnormal [Unknown]
  - Hepatic enzyme increased [Not Recovered/Not Resolved]

NARRATIVE: CASE EVENT DATE: 20050411
